FAERS Safety Report 6286490-0 (Version None)
Quarter: 2009Q3

REPORT INFORMATION
  Report Type: 
  Country: None (occurrence: None)
  Receive Date: 20090727
  Receipt Date: 20090727
  Transmission Date: 20100115
  Serious: Yes (Other)
  Sender: FDA-Public Use
  Company Number: None

PATIENT
  Age: 81 Year
  Sex: Female
  Weight: 74.5 kg

DRUGS (2)
  1. EMLA [Suspect]
     Indication: HAEMODIALYSIS
     Dates: start: 20090601, end: 20090630
  2. EMLA [Suspect]
     Indication: PAIN MANAGEMENT
     Dates: start: 20090601, end: 20090630

REACTIONS (2)
  - INADEQUATE ANALGESIA [None]
  - PRODUCT SUBSTITUTION ISSUE [None]
